FAERS Safety Report 7247531-7 (Version None)
Quarter: 2011Q1

REPORT INFORMATION
  Report Type: 
  Country: None (occurrence: None)
  Receive Date: 20110127
  Receipt Date: 20110117
  Transmission Date: 20110831
  Serious: Yes (Hospitalization)
  Sender: FDA-Public Use
  Company Number: PHHY2011NL03585

PATIENT
  Age: 53 Year
  Sex: Male

DRUGS (9)
  1. CLOZAPINE [Suspect]
     Dosage: 400 MG, QD
  2. RISPERIDONE [Concomitant]
  3. PROMETHAZINE [Concomitant]
  4. METOPROLOL [Concomitant]
     Dosage: 50 MG, QD
  5. VALPROIC ACID [Concomitant]
     Dosage: 2500 MG, QD
  6. CLOZAPINE [Suspect]
     Indication: SCHIZOAFFECTIVE DISORDER
     Dosage: 600 MG
  7. CLOZAPINE [Suspect]
     Indication: HALLUCINATION
     Dosage: 350 MG, QD
  8. BENZODIAZEPINES [Concomitant]
     Dosage: UNK
  9. LORAZEPAM [Concomitant]
     Dosage: 3 MG, QD

REACTIONS (9)
  - WHITE BLOOD CELL COUNT INCREASED [None]
  - ANTIPSYCHOTIC DRUG LEVEL INCREASED [None]
  - FISTULA [None]
  - CONSTIPATION [None]
  - DELIRIUM [None]
  - C-REACTIVE PROTEIN INCREASED [None]
  - GALLSTONE ILEUS [None]
  - CHOLECYSTITIS ACUTE [None]
  - POISONING [None]
